FAERS Safety Report 9363826 (Version 1)
Quarter: 2013Q2

REPORT INFORMATION
  Report Type: Spontaneous
  Country: RO (occurrence: None)
  Receive Date: 20130618
  Receipt Date: 20130618
  Transmission Date: 20140414
  Serious: Yes (Other)
  Sender: FDA-Public Use
  Company Number: FK201302072

PATIENT
  Age: 3 Year
  Sex: Female

DRUGS (4)
  1. CARBOPLATIN [Suspect]
     Indication: NEPHROBLASTOMA
  2. VP 16 (INVESTIGATIONAL DRUG) [Suspect]
     Indication: NEPHROBLASTOMA
  3. CYCLOPHOSPHAMIDE [Suspect]
     Indication: NEPHROBLASTOMA
  4. DOXORUBICIN [Suspect]
     Indication: NEPHROBLASTOMA

REACTIONS (1)
  - Aplasia [None]
